FAERS Safety Report 21340743 (Version 1)
Quarter: 2022Q3

REPORT INFORMATION
  Report Type: Spontaneous
  Country: MY (occurrence: MY)
  Receive Date: 20220916
  Receipt Date: 20220916
  Transmission Date: 20221026
  Serious: Yes (Other)
  Sender: FDA-Public Use
  Company Number: MY-SUN PHARMACEUTICAL INDUSTRIES LTD-2022R1-354650

PATIENT
  Age: 30 Year
  Sex: Female

DRUGS (1)
  1. CINACALCET [Suspect]
     Active Substance: CINACALCET
     Indication: Hypercalcaemia
     Dosage: 25 MILLIGRAM, DAILY
     Route: 065

REACTIONS (4)
  - Pre-eclampsia [Unknown]
  - Pancreatitis [Unknown]
  - Exposure during pregnancy [Unknown]
  - Premature delivery [Unknown]
